FAERS Safety Report 8032552-7 (Version None)
Quarter: 2012Q1

REPORT INFORMATION
  Report Type: 
  Country: None (occurrence: None)
  Receive Date: 20120110
  Receipt Date: 20110309
  Transmission Date: 20120608
  Serious: No
  Sender: FDA-Public Use
  Company Number: US-MYLANLABS-2011S1005217

PATIENT
  Age: 79 Year
  Sex: Female

DRUGS (2)
  1. FENOFIBRATE [Suspect]
     Indication: BLOOD CHOLESTEROL
     Route: 048
     Dates: start: 20110305
  2. LISINOPRIL [Concomitant]

REACTIONS (2)
  - MUSCULOSKELETAL PAIN [None]
  - ABDOMINAL DISCOMFORT [None]
